FAERS Safety Report 6649159-6 (Version None)
Quarter: 2010Q1

REPORT INFORMATION
  Report Type: 
  Country: None (occurrence: None)
  Receive Date: 20100324
  Receipt Date: 20100315
  Transmission Date: 20100710
  Serious: Yes (Other)
  Sender: FDA-Public Use
  Company Number: A0850707A

PATIENT
  Sex: Female

DRUGS (2)
  1. RYTHMOL [Suspect]
     Indication: ATRIAL FIBRILLATION
     Route: 065
  2. TOPROL-XL [Concomitant]
     Indication: ATRIAL FIBRILLATION

REACTIONS (3)
  - ATRIAL FIBRILLATION [None]
  - FATIGUE [None]
  - SOMNOLENCE [None]
